FAERS Safety Report 8994415 (Version 1)
Quarter: 2013Q1

REPORT INFORMATION
  Report Type: Spontaneous
  Country: US (occurrence: US)
  Receive Date: 20130102
  Receipt Date: 20130102
  Transmission Date: 20140127
  Serious: No
  Sender: FDA-Public Use
  Company Number: US-AMGEN-USASP2012080240

PATIENT
  Age: 60 Year
  Sex: Female

DRUGS (1)
  1. ENBREL [Suspect]
     Indication: PSORIASIS
     Dosage: 50 MG, QWK
     Dates: start: 20120525

REACTIONS (6)
  - Skin atrophy [Not Recovered/Not Resolved]
  - Laceration [Not Recovered/Not Resolved]
  - Scar [Recovered/Resolved]
  - Injury [Not Recovered/Not Resolved]
  - Increased tendency to bruise [Recovered/Resolved]
  - Haemorrhagic diathesis [Recovered/Resolved]
